FAERS Safety Report 6288457-5 (Version None)
Quarter: 2009Q3

REPORT INFORMATION
  Report Type: 
  Country: None (occurrence: None)
  Receive Date: 20090729
  Receipt Date: 20090720
  Transmission Date: 20100115
  Serious: Yes (Life-Threatening)
  Sender: FDA-Public Use
  Company Number: B0575037A

PATIENT
  Age: 25 Year
  Sex: Female

DRUGS (1)
  1. ZENTEL [Suspect]
     Indication: INFECTION PARASITIC
     Dosage: 2TAB PER DAY
     Route: 048
     Dates: start: 20090428, end: 20090428

REACTIONS (8)
  - ASTHENIA [None]
  - CHROMATURIA [None]
  - HEADACHE [None]
  - LIVER INJURY [None]
  - NAUSEA [None]
  - SCLERAL DISCOLOURATION [None]
  - VOMITING [None]
  - YELLOW SKIN [None]
